FAERS Safety Report 9791456 (Version 3)
Quarter: 2014Q1

REPORT INFORMATION
  Report Type: Report from Study
  Country: BR (occurrence: BR)
  Receive Date: 20140101
  Receipt Date: 20140207
  Transmission Date: 20141002
  Serious: Yes (Death, Hospitalization)
  Sender: FDA-Public Use
  Company Number: PHHY2013BR140709

PATIENT
  Age: 38 Year
  Sex: Male
  Weight: 44 kg

DRUGS (4)
  1. SANDOSTATIN LAR [Suspect]
     Indication: NEUROENDOCRINE TUMOUR
     Dosage: 30 MG, QMO
     Route: 030
     Dates: start: 201308
  2. TORSILAX [Concomitant]
     Indication: PAIN
     Dosage: 1 DF, WEEKLY
     Route: 048
  3. DIMORF [Concomitant]
     Indication: PAIN
     Dosage: 2 DF(10MG), DAILY
     Route: 048
  4. LORAX//LORAZEPAM [Concomitant]
     Indication: RELAXATION THERAPY
     Dosage: 2 DF(2MG), DAILY
     Route: 048

REACTIONS (21)
  - Multi-organ failure [Fatal]
  - Cachexia [Fatal]
  - Metastases to liver [Fatal]
  - Malignant neoplasm progression [Fatal]
  - Pain [Recovering/Resolving]
  - Vomiting [Recovering/Resolving]
  - Nausea [Recovering/Resolving]
  - Haematemesis [Recovering/Resolving]
  - Tension [Unknown]
  - Nervousness [Unknown]
  - Fear [Unknown]
  - Insomnia [Unknown]
  - Movement disorder [Unknown]
  - Increased appetite [Unknown]
  - Abdominal rigidity [Unknown]
  - Musculoskeletal stiffness [Unknown]
  - Defaecation urgency [Unknown]
  - Crying [Unknown]
  - Weight decreased [Unknown]
  - Abdominal distension [Unknown]
  - Asthenia [Unknown]
